FAERS Safety Report 4882922-0 (Version None)
Quarter: 2005Q4

REPORT INFORMATION
  Report Type: 
  Country: None (occurrence: None)
  Receive Date: 20051201
  Receipt Date: 20050922
  Transmission Date: 20060501
  Serious: No
  Sender: FDA-Public Use
  Company Number: 2005PV002467

PATIENT
  Age: 57 Year
  Sex: Female
  Weight: 136.0791 kg

DRUGS (7)
  1. BYETTA [Suspect]
     Indication: DIABETES MELLITUS
     Dosage: 5 MCG;SC
     Route: 058
     Dates: start: 20050922, end: 20050922
  2. METFORMIN HCL [Concomitant]
  3. GLUCOTROL XL [Concomitant]
  4. SYNTHROID [Concomitant]
  5. VYTORIN [Concomitant]
  6. LIPITOR [Concomitant]
  7. INHALER [Concomitant]

REACTIONS (10)
  - DIARRHOEA [None]
  - DYSPHONIA [None]
  - DYSPNOEA [None]
  - FEELING JITTERY [None]
  - HYPERSENSITIVITY [None]
  - NAUSEA [None]
  - PARANASAL SINUS HYPERSECRETION [None]
  - PHARYNGOLARYNGEAL PAIN [None]
  - SNEEZING [None]
  - THROAT IRRITATION [None]
